FAERS Safety Report 10818544 (Version 2)
Quarter: 2015Q1

REPORT INFORMATION
  Report Type: Report from Study
  Country: DE (occurrence: DE)
  Receive Date: 20150218
  Receipt Date: 20150312
  Transmission Date: 20150721
  Serious: Yes (Hospitalization, Other)
  Sender: FDA-Public Use
  Company Number: DE-BAYER-2015-019332

PATIENT
  Age: 35 Year
  Sex: Female
  Weight: 84 kg

DRUGS (5)
  1. BETAFERON [Suspect]
     Active Substance: INTERFERON BETA-1B
     Indication: MULTIPLE SCLEROSIS
     Dosage: 250 ?G, QOD
     Route: 058
     Dates: start: 20090901, end: 20141201
  2. L-THYROXIN [Concomitant]
     Active Substance: LEVOTHYROXINE SODIUM
     Dosage: UNK
     Dates: start: 2013
  3. IBUPROFEN. [Concomitant]
     Active Substance: IBUPROFEN
     Indication: INFLUENZA LIKE ILLNESS
     Dosage: UNK UNK, QOD
     Dates: start: 20090901, end: 20141201
  4. IBUPROFEN. [Concomitant]
     Active Substance: IBUPROFEN
     Indication: INJECTION SITE REACTION
  5. BETAFERON [Suspect]
     Active Substance: INTERFERON BETA-1B
     Indication: MULTIPLE SCLEROSIS
     Dosage: 250 ?G, QOD
     Route: 058
     Dates: start: 2008

REACTIONS (7)
  - Influenza like illness [Recovered/Resolved]
  - Fat necrosis [None]
  - Injection site reaction [Recovered/Resolved with Sequelae]
  - Weight decreased [Recovered/Resolved]
  - Injection site pain [Not Recovered/Not Resolved]
  - Substance use [None]
  - Progressive multiple sclerosis [None]

NARRATIVE: CASE EVENT DATE: 20141201
